FAERS Safety Report 12622488 (Version 2)
Quarter: 2016Q4

REPORT INFORMATION
  Report Type: Spontaneous
  Country: US (occurrence: US)
  Receive Date: 20160804
  Receipt Date: 20161110
  Transmission Date: 20170207
  Serious: No
  Sender: FDA-Public Use
  Company Number: US-TEVA-677728USA

PATIENT
  Age: 59 Year
  Sex: Female

DRUGS (26)
  1. PROCTOFOAM HER HC 1% [Concomitant]
  2. OMEPRAZOLE. [Concomitant]
     Active Substance: OMEPRAZOLE
  3. FLUTICASONE [Concomitant]
     Active Substance: FLUTICASONE\FLUTICASONE PROPIONATE
  4. FISH OIL [Concomitant]
     Active Substance: FISH OIL
  5. COPAXONE [Suspect]
     Active Substance: GLATIRAMER ACETATE
     Route: 058
     Dates: start: 201511
  6. LORAZEPAM. [Concomitant]
     Active Substance: LORAZEPAM
  7. IPRATROPIUM/SOLALBUTER [Concomitant]
     Route: 065
  8. GABAPENTIN. [Concomitant]
     Active Substance: GABAPENTIN
  9. SPIRIVA [Concomitant]
     Active Substance: TIOTROPIUM BROMIDE MONOHYDRATE
  10. NYSTATIN. [Concomitant]
     Active Substance: NYSTATIN
  11. HYDROCHLOROTHIAZIDE. [Concomitant]
     Active Substance: HYDROCHLOROTHIAZIDE
  12. DIAZEPAM. [Concomitant]
     Active Substance: DIAZEPAM
  13. LISINOPRIL. [Concomitant]
     Active Substance: LISINOPRIL
     Route: 065
  14. MELOXICAM. [Concomitant]
     Active Substance: MELOXICAM
  15. ATORVASTATIN [Concomitant]
     Active Substance: ATORVASTATIN
  16. ANASTROZOLE. [Concomitant]
     Active Substance: ANASTROZOLE
  17. VENTOLIN HFA [Concomitant]
     Active Substance: ALBUTEROL SULFATE
  18. LINZESS [Concomitant]
     Active Substance: LINACLOTIDE
  19. MONTELUKAST [Concomitant]
     Active Substance: MONTELUKAST SODIUM
  20. ALLOPURINOL. [Concomitant]
     Active Substance: ALLOPURINOL
  21. MAGNESIUM [Concomitant]
     Active Substance: MAGNESIUM
  22. IBUPROFEN. [Concomitant]
     Active Substance: IBUPROFEN
  23. VITAMIN D [Concomitant]
     Active Substance: CHOLECALCIFEROL
     Dosage: 1000 UNIT
  24. ANUCORT-HC [Concomitant]
     Active Substance: HYDROCORTISONE ACETATE
  25. COLACE [Concomitant]
     Active Substance: DOCUSATE SODIUM
  26. ALBUTEROL NEB [Concomitant]

REACTIONS (4)
  - Pain in extremity [Unknown]
  - Arthralgia [Unknown]
  - Fatigue [Unknown]
  - Asthenia [Unknown]

NARRATIVE: CASE EVENT DATE: 201605
